FAERS Safety Report 9519781 (Version 1)
Quarter: 2013Q3

REPORT INFORMATION
  Report Type: Spontaneous
  Country: US (occurrence: None)
  Receive Date: 20130911
  Receipt Date: 20130911
  Transmission Date: 20140515
  Serious: Yes (Other)
  Sender: FDA-Public Use
  Company Number: None

PATIENT
  Age: 55 Year
  Sex: Female
  Weight: 65.77 kg

DRUGS (7)
  1. ANTIPYRINE AND BENZOCAINE OTIC [Suspect]
     Indication: EAR PAIN
     Dates: start: 20130718
  2. IBUPROFEN [Concomitant]
  3. TYLENOL [Concomitant]
  4. GABAPENTIN [Concomitant]
  5. HYDROCODONE [Concomitant]
  6. MUCINEX [Concomitant]
  7. CLARITIN [Concomitant]

REACTIONS (5)
  - Ear swelling [None]
  - Eye swelling [None]
  - Otorrhoea [None]
  - Rash [None]
  - Deafness [None]
